FAERS Safety Report 13869196 (Version 6)
Quarter: 2018Q1

REPORT INFORMATION
  Report Type: Report from Study
  Country: US (occurrence: US)
  Receive Date: 20170815
  Receipt Date: 20180123
  Transmission Date: 20180508
  Serious: Yes (Life-Threatening, Other)
  Sender: FDA-Public Use
  Company Number: US-PFIZER INC-2017265475

PATIENT
  Age: 12 Year
  Sex: Male
  Weight: 43.3 kg

DRUGS (40)
  1. VALCYTE [Concomitant]
     Active Substance: VALGANCICLOVIR HYDROCHLORIDE
     Indication: ANTIVIRAL TREATMENT
     Dosage: 900 MG, 2X/DAY
     Route: 048
  2. ALOXI [Concomitant]
     Active Substance: PALONOSETRON HYDROCHLORIDE
     Dosage: 250 UG, SINGLE
     Route: 042
     Dates: start: 20170614
  3. MELATONIN [Concomitant]
     Active Substance: MELATONIN
     Indication: SLEEP DISORDER
     Dosage: 3 MG, DAILY (NIGHTLY)
     Route: 048
     Dates: start: 20170621
  4. DOLOPHINE [Concomitant]
     Active Substance: METHADONE HYDROCHLORIDE
     Indication: PAIN
     Dosage: 2.5 MG, 2X/DAY (EVERY 12 HOURS)
     Route: 042
     Dates: start: 20170621
  5. MIRALAX [Concomitant]
     Active Substance: POLYETHYLENE GLYCOL 3350
     Indication: CONSTIPATION
     Dosage: 17 G, 2X/DAY
     Route: 048
     Dates: start: 20170621
  6. ALDACTONE [Concomitant]
     Active Substance: SPIRONOLACTONE
     Indication: ANTIBIOTIC THERAPY
     Dosage: 50 MG, DAILY
     Route: 048
     Dates: start: 20170615
  7. OFIRMEV [Concomitant]
     Active Substance: ACETAMINOPHEN
     Indication: PAIN
     Dosage: 500 MG, EVERY 4 HOURS
     Route: 042
     Dates: start: 20170621
  8. GEMTUZUMAB OZOGAMICIN [Suspect]
     Active Substance: GEMTUZUMAB OZOGAMICIN
     Indication: ACUTE MYELOID LEUKAEMIA RECURRENT
     Dosage: 4 MG/M2, CYCLIC (DAY 1, 4 AND 7)
     Route: 042
     Dates: start: 20170614, end: 20170620
  9. TYLENOL [Concomitant]
     Active Substance: ACETAMINOPHEN
     Indication: HEADACHE
  10. MYCAMINE [Concomitant]
     Active Substance: MICAFUNGIN SODIUM
     Dosage: 50 MG, DAILY
     Route: 042
     Dates: start: 20170621
  11. BENADRYL [Concomitant]
     Active Substance: DIPHENHYDRAMINE HYDROCHLORIDE
     Dosage: 25 MG, EVERY 4 HOURS
     Route: 042
     Dates: start: 20170621
  12. LASIX [Concomitant]
     Active Substance: FUROSEMIDE
     Dosage: 100 MG, DAILY (AT BEDTIME)
     Route: 048
     Dates: start: 20170621
  13. ATIVAN [Concomitant]
     Active Substance: LORAZEPAM
     Indication: SEDATIVE THERAPY
     Dosage: 0.5 MG, 4X/DAY (EVERY 6 HOURS)
     Route: 042
     Dates: start: 20170621
  14. MELATONIN [Concomitant]
     Active Substance: MELATONIN
     Indication: SLEEP DISORDER
     Dosage: 3 MG, NIGHTLY AS NEEDED
     Route: 048
  15. REMERON [Concomitant]
     Active Substance: MIRTAZAPINE
     Indication: DEPRESSION
     Dosage: 15 MG, DAILY
     Route: 048
  16. DOCUSATE SODIUM. [Concomitant]
     Active Substance: DOCUSATE SODIUM
     Indication: DIARRHOEA
     Dosage: 100 MG, DAILY AS NEEDED
     Route: 048
  17. POLYETHYLENE GLYCOL [Concomitant]
     Active Substance: POLYETHYLENE GLYCOLS
     Indication: CONSTIPATION
     Dosage: 17 G, POWDER IN PACKET, 1 PACK DAILY AS NEEDED
     Route: 048
  18. TYLENOL [Concomitant]
     Active Substance: ACETAMINOPHEN
     Indication: PAIN
     Dosage: 650 MG, CYCLIC (EVERY 3 DAYS)
     Route: 048
     Dates: start: 20170614
  19. BENADRYL [Concomitant]
     Active Substance: DIPHENHYDRAMINE HYDROCHLORIDE
     Indication: ANTIALLERGIC THERAPY
     Dosage: 20 MG, ONCE AS NEEDED
     Route: 042
     Dates: start: 20170614
  20. BENADRYL [Concomitant]
     Active Substance: DIPHENHYDRAMINE HYDROCHLORIDE
     Dosage: 40 MG, CYCLIC (EVERY 3 DAYS)
     Route: 042
     Dates: start: 20170617
  21. BACTRIM [Concomitant]
     Active Substance: SULFAMETHOXAZOLE\TRIMETHOPRIM
     Dosage: 160 MG, CYCLIC (SATURDAY AND SUNDAY)
     Route: 048
     Dates: start: 20170617
  22. EMEND [Concomitant]
     Active Substance: APREPITANT
     Indication: PROPHYLAXIS OF NAUSEA AND VOMITING
     Dosage: 125 MG, GIVEN 1 HOUR PRIOR TO CHEMO
     Route: 048
     Dates: start: 20170614, end: 20170616
  23. LASIX [Concomitant]
     Active Substance: FUROSEMIDE
     Indication: POLYURIA
     Dosage: 10 MG, DAILY
     Route: 048
     Dates: start: 20170615
  24. CYTARABINE. [Suspect]
     Active Substance: CYTARABINE
     Indication: ACUTE MYELOID LEUKAEMIA RECURRENT
     Dosage: 100 MG/M2, DAILY (DAYS 1-7)
     Route: 042
     Dates: start: 20170614, end: 20170620
  25. SOLU-MEDROL [Concomitant]
     Active Substance: METHYLPREDNISOLONE SODIUM SUCCINATE
     Dosage: 20 MG, 2X/DAY (EVERY 12 HOURS)
     Route: 042
     Dates: start: 20170615
  26. COLACE [Concomitant]
     Active Substance: DOCUSATE SODIUM
     Indication: CONSTIPATION PROPHYLAXIS
     Dosage: 100 MG, DAILY
     Route: 048
     Dates: start: 20170621
  27. METHYLPREDNISOLONE SODIUM SUCCINATE. [Concomitant]
     Active Substance: METHYLPREDNISOLONE SODIUM SUCCINATE
     Indication: STEROID THERAPY
     Dosage: 30 MG, 2X/DAY (EVERY 12 HOURS)
     Route: 042
     Dates: start: 20170621
  28. BACTRIM DS [Concomitant]
     Active Substance: SULFAMETHOXAZOLE\TRIMETHOPRIM
     Indication: ANTIBIOTIC THERAPY
     Dosage: 80 MG, CYCLIC (2X/DAY, ON SATURDAY AND SUNDAY)
     Route: 048
  29. ZOFRAN [Concomitant]
     Active Substance: ONDANSETRON HYDROCHLORIDE
     Indication: NAUSEA
     Dosage: 6 MG, 3X/DAY AS NEEDED
     Route: 048
  30. MYCAMINE [Concomitant]
     Active Substance: MICAFUNGIN SODIUM
     Dosage: 50 MG, DAILY
     Route: 042
     Dates: start: 20170617
  31. HYDROMORPHONE [Concomitant]
     Active Substance: HYDROMORPHONE
     Indication: PAIN
     Dosage: 0.2 MG, SINGLE
     Route: 040
     Dates: start: 20170621, end: 20170715
  32. ATIVAN [Concomitant]
     Active Substance: LORAZEPAM
     Dosage: 0.25 MG (1 CAPSULE), EVERY 6 HOURS AS NEEDED
     Route: 048
  33. DIFLUCAN [Concomitant]
     Active Substance: FLUCONAZOLE
     Indication: ANTIFUNGAL TREATMENT
     Dosage: 200 MG, DAILY
     Route: 048
  34. LUBRIDERM /01007601/ [Concomitant]
     Active Substance: PARAFFIN
     Indication: DRY SKIN
     Dosage: UNK, AS NEEDED
     Route: 061
  35. TYLENOL [Concomitant]
     Active Substance: ACETAMINOPHEN
     Indication: INFUSION RELATED REACTION
     Dosage: 650 MG, EVERY 4 HOURS
     Route: 048
     Dates: start: 20170617
  36. TYLENOL [Concomitant]
     Active Substance: ACETAMINOPHEN
     Indication: BODY TEMPERATURE INCREASED
     Dosage: 650 MG, EVERY 6 HOURS AS NEEDED
     Route: 048
  37. EMEND [Concomitant]
     Active Substance: APREPITANT
     Dosage: 80 MG, 1XDAY (EVERY MORNING BEFORE BREAKFAST)
     Route: 048
     Dates: start: 20170615
  38. MYCAMINE [Concomitant]
     Active Substance: MICAFUNGIN SODIUM
     Indication: PROPHYLAXIS
     Dosage: 50 MG, DAILY
     Route: 042
     Dates: start: 20170615
  39. BENADRYL [Concomitant]
     Active Substance: DIPHENHYDRAMINE HYDROCHLORIDE
     Dosage: 25 MG, EVERY 6 HOURS AS NEEDED
     Route: 048
  40. VASOTEC [Concomitant]
     Active Substance: ENALAPRIL MALEATE
     Indication: HYPERTENSION
     Dosage: 5 MG, DAILY
     Route: 048
     Dates: start: 20170621

REACTIONS (22)
  - Peritonitis [Not Recovered/Not Resolved]
  - Proctalgia [Not Recovered/Not Resolved]
  - Condition aggravated [Not Recovered/Not Resolved]
  - Pain [Not Recovered/Not Resolved]
  - Anaemia [Not Recovered/Not Resolved]
  - Pyrexia [Not Recovered/Not Resolved]
  - Petechiae [Not Recovered/Not Resolved]
  - Headache [Recovered/Resolved]
  - Nausea [Recovered/Resolved]
  - Decreased appetite [Recovering/Resolving]
  - Transaminases increased [Not Recovered/Not Resolved]
  - Urinary tract infection [Recovering/Resolving]
  - Pain [Recovered/Resolved]
  - Gingival bleeding [Recovered/Resolved]
  - White blood cell count decreased [Recovered/Resolved]
  - Platelet count decreased [Not Recovered/Not Resolved]
  - Haematochezia [Recovered/Resolved]
  - Cardiac failure [Not Recovered/Not Resolved]
  - Erythema [Recovered/Resolved]
  - Fatigue [Not Recovered/Not Resolved]
  - Vomiting [Not Recovered/Not Resolved]
  - Anal pruritus [Recovered/Resolved]

NARRATIVE: CASE EVENT DATE: 20170614
